FAERS Safety Report 8971359 (Version 1)
Quarter: 2012Q4

REPORT INFORMATION
  Report Type: 
  Country: BR (occurrence: BR)
  Receive Date: 20121217
  Receipt Date: 20121217
  Transmission Date: 20130627
  Serious: Yes (Other)
  Sender: FDA-Public Use
  Company Number: PHHY2012BR115926

PATIENT
  Sex: Male

DRUGS (1)
  1. RITALINA [Suspect]
     Indication: ATTENTION DEFICIT/HYPERACTIVITY DISORDER
     Dosage: 30 mg daily
     Route: 048

REACTIONS (3)
  - Depression [Unknown]
  - Bipolar disorder [Unknown]
  - Negativism [Unknown]
